FAERS Safety Report 7973737-5 (Version None)
Quarter: 2011Q4

REPORT INFORMATION
  Report Type: 
  Country: None (occurrence: None)
  Receive Date: 20111213
  Receipt Date: 20111128
  Transmission Date: 20120403
  Serious: Yes (Hospitalization)
  Sender: FDA-Public Use
  Company Number: US-WATSON-2010-12066

PATIENT
  Sex: Female
  Weight: 112 kg

DRUGS (3)
  1. FENTANYL-50 [Suspect]
     Indication: CANCER PAIN
     Dosage: 1 PATCH Q 72HRS
     Route: 062
     Dates: start: 20100826, end: 20100904
  2. BENICAR [Concomitant]
     Indication: HYPERTENSION
     Dosage: UNK
     Route: 065
  3. COREG [Concomitant]
     Indication: HYPERTENSION
     Dosage: UNK
     Route: 065

REACTIONS (12)
  - MIOSIS [None]
  - BLOOD PRESSURE INCREASED [None]
  - ABASIA [None]
  - NAUSEA [None]
  - CONSCIOUSNESS FLUCTUATING [None]
  - SENSATION OF HEAVINESS [None]
  - ASTHENIA [None]
  - VOMITING [None]
  - SEDATION [None]
  - INCOHERENT [None]
  - HEADACHE [None]
  - AMNESIA [None]
